FAERS Safety Report 14563344 (Version 1)
Quarter: 2018Q1

REPORT INFORMATION
  Report Type: Spontaneous
  Country: US (occurrence: US)
  Receive Date: 20180222
  Receipt Date: 20180222
  Transmission Date: 20180509
  Serious: No
  Sender: FDA-Public Use
  Company Number: US-GLAXOSMITHKLINE-US2018GSK025379

PATIENT
  Age: 58 Year
  Sex: Male

DRUGS (4)
  1. LAMOTRIGINE. [Suspect]
     Active Substance: LAMOTRIGINE
     Indication: MUSCLE SPASMS
  2. LYRICA [Suspect]
     Active Substance: PREGABALIN
     Indication: MUSCLE SPASMS
     Dosage: 75 MG, TID
     Route: 048
     Dates: start: 2005
  3. MORPHINE [Concomitant]
     Active Substance: MORPHINE
  4. MORPHINE TABLET [Concomitant]

REACTIONS (4)
  - Drug ineffective for unapproved indication [Unknown]
  - Ill-defined disorder [Unknown]
  - Depression [Not Recovered/Not Resolved]
  - Fall [Not Recovered/Not Resolved]

NARRATIVE: CASE EVENT DATE: 201801
